FAERS Safety Report 5015186-8 (Version None)
Quarter: 2006Q2

REPORT INFORMATION
  Report Type: 
  Country: None (occurrence: None)
  Receive Date: 20060425
  Receipt Date: 20060216
  Transmission Date: 20061013
  Serious: No
  Sender: FDA-Public Use
  Company Number: 222270

PATIENT
  Age: 39 Year
  Sex: Female
  Weight: 66.5 kg

DRUGS (6)
  1. XOLAIR [Suspect]
     Indication: ASTHMA
     Dosage: 150, Q4W
     Dates: start: 20041203, end: 20051025
  2. SINGULAIR [Concomitant]
  3. ADVAIR DISKUS 100/50 [Concomitant]
  4. CLARITIN [Concomitant]
  5. ALBUTEROL (ALBUTEROL/ALBUTEROL SULFATE) [Concomitant]
  6. ZANTAC [Concomitant]

REACTIONS (1)
  - DRUG EXPOSURE DURING PREGNANCY [None]
